FAERS Safety Report 5506289-X (Version None)
Quarter: 2007Q4

REPORT INFORMATION
  Report Type: 
  Country: None (occurrence: None)
  Receive Date: 20071101
  Receipt Date: 20071101
  Transmission Date: 20080405
  Serious: Yes (Hospitalization)
  Sender: FDA-Public Use
  Company Number: None

PATIENT
  Age: 69 Year
  Sex: Male

DRUGS (1)
  1. ALBUTEROL [Suspect]
     Indication: DYSPNOEA
     Dosage: 2.5MG PRN INHALE
     Route: 055
     Dates: start: 20070928, end: 20070928

REACTIONS (2)
  - ATRIAL FLUTTER [None]
  - TACHYCARDIA [None]
